FAERS Safety Report 25884621 (Version 1)
Quarter: 2025Q4

REPORT INFORMATION
  Report Type: Spontaneous
  Country: US (occurrence: None)
  Receive Date: 20251003
  Receipt Date: 20251003
  Transmission Date: 20260118
  Serious: No
  Sender: FDA-CTU
  Company Number: None

PATIENT
  Age: 82 Year
  Sex: Female

DRUGS (1)
  1. LENALIDOMIDE [Suspect]
     Active Substance: LENALIDOMIDE
     Indication: Plasma cell myeloma
     Dosage: 5MG QD ORAL
     Route: 048
     Dates: start: 20250107

REACTIONS (2)
  - Gastrointestinal haemorrhage [None]
  - Varices oesophageal [None]

NARRATIVE: CASE EVENT DATE: 20250919
